FAERS Safety Report 6201112 (Version 2)
Quarter: 2013Q2

REPORT INFORMATION
  Report Type: Not Available
  Country: FR (occurrence: FR)
  Receive Date: 20061222
  Receipt Date: 20130502
  Transmission Date: 20140414
  Serious: Yes (Hospitalization, Disabling, Congenital Anomaly, Other)
  Sender: FDA-Public Use
  Company Number: FR-RB-621-2004

PATIENT
  Age: 0 Year
  Sex: Female
  Weight: 3.71 kg

DRUGS (3)
  1. SUBUTEX [Suspect]
     Indication: DRUG DEPENDENCE
     Dosage: DOSING DETAILS UNKNOWN
     Route: 064
     Dates: start: 200206, end: 20030323
  2. ALCOHOL ORAL SOLUTION [Suspect]
     Indication: ALCOHOL USE
     Dosage: 3-4 BEERS PER WEEK
     Route: 064
     Dates: start: 200206, end: 20030323
  3. LEXOMIL [Suspect]
     Indication: PRODUCT USED FOR UNKNOWN INDICATION
     Dosage: 3 TABLETS DAILY
     Route: 064
     Dates: start: 200206, end: 20030323

REACTIONS (14)
  - Drug withdrawal syndrome neonatal [Unknown]
  - Foetal alcohol syndrome [Recovered/Resolved]
  - Candida infection [Recovered/Resolved]
  - Growth retardation [Recovered/Resolved]
  - Cardiac murmur [Unknown]
  - Weight decrease neonatal [Recovered/Resolved]
  - Gastrooesophageal reflux disease [Recovered/Resolved]
  - Dysmorphism [Unknown]
  - Decreased appetite [Unknown]
  - Somnolence [Unknown]
  - Hypertonia neonatal [Unknown]
  - Diarrhoea neonatal [Recovered/Resolved]
  - Tremor neonatal [Unknown]
  - Foetal exposure during pregnancy [Recovered/Resolved]
